FAERS Safety Report 9738368 (Version 1)
Quarter: 2013Q4

REPORT INFORMATION
  Report Type: Report from Study
  Country: AR (occurrence: AR)
  Receive Date: 20131208
  Receipt Date: 20131208
  Transmission Date: 20140711
  Serious: Yes (Other)
  Sender: FDA-Public Use
  Company Number: AR-ROCHE-1314791

PATIENT
  Sex: Male

DRUGS (1)
  1. RANIBIZUMAB [Suspect]
     Indication: VISUAL ACUITY REDUCED
     Route: 050
     Dates: start: 2012

REACTIONS (2)
  - Diabetes mellitus [Unknown]
  - Cerebrovascular accident [Unknown]
